FAERS Safety Report 8231656-3 (Version None)
Quarter: 2012Q1

REPORT INFORMATION
  Report Type: 
  Country: None (occurrence: None)
  Receive Date: 20120323
  Receipt Date: 20120321
  Transmission Date: 20120608
  Serious: Yes (Other)
  Sender: FDA-Public Use
  Company Number: GB-PFIZER INC-2012073147

PATIENT
  Age: 66 Year
  Sex: Female

DRUGS (9)
  1. CALCIUM CARBONATE [Concomitant]
  2. ACETAMINOPHEN AND CODEINE PHOSPHATE [Concomitant]
  3. PROPANOL [Concomitant]
  4. VENTOLIN [Concomitant]
  5. AMITRIPTYLINE HCL [Concomitant]
  6. LEVOTHYROXINE [Concomitant]
  7. OMEPRAZOLE [Concomitant]
  8. VARENICLINE TARTRATE [Suspect]
     Dosage: 0.5 MG
     Route: 048
     Dates: start: 20120305, end: 20120305
  9. PREGABALIN [Concomitant]

REACTIONS (3)
  - SWEAT GLAND DISORDER [None]
  - PALPITATIONS [None]
  - DIZZINESS [None]
